FAERS Safety Report 22055467 (Version 2)
Quarter: 2023Q2

REPORT INFORMATION
  Report Type: Spontaneous
  Country: US (occurrence: US)
  Receive Date: 20230302
  Receipt Date: 20230417
  Transmission Date: 20230721
  Serious: No
  Sender: FDA-Public Use
  Company Number: US-AMGEN-USASP2023034017

PATIENT
  Age: 71 Year
  Sex: Male

DRUGS (23)
  1. REPATHA [Suspect]
     Active Substance: EVOLOCUMAB
     Indication: Blood cholesterol increased
     Dosage: 140 MILLIGRAM, Q2WK
     Route: 058
     Dates: start: 20220629, end: 20230223
  2. REPATHA [Suspect]
     Active Substance: EVOLOCUMAB
     Indication: Type IIa hyperlipidaemia
     Dosage: 140 MILLIGRAM, Q2WK
     Route: 058
  3. ARIMIDEX [Concomitant]
     Active Substance: ANASTROZOLE
     Dosage: 1 MILLIGRAM, QWK
     Route: 048
  4. ELIQUIS [Concomitant]
     Active Substance: APIXABAN
     Dosage: 5 MILLIGRAM, BID
     Route: 048
     Dates: start: 20220629
  5. BUMEX [Concomitant]
     Active Substance: BUMETANIDE
     Dosage: 2 MILLIGRAM, BID
     Route: 048
     Dates: start: 20220628
  6. VITAMIN B12 [Concomitant]
     Active Substance: CYANOCOBALAMIN
     Dosage: 1000 MICROGRAM, QMO
     Dates: start: 20220416, end: 20221003
  7. LUNESTA [Concomitant]
     Active Substance: ESZOPICLONE
     Dosage: 2 MILLIGRAM, QD
     Route: 048
     Dates: start: 20220604, end: 20221202
  8. IRON [Concomitant]
     Active Substance: IRON
     Dosage: 325 MILLIGRAM, QD
     Route: 048
     Dates: start: 20211231, end: 20221231
  9. PROSCAR [Concomitant]
     Active Substance: FINASTERIDE
     Dosage: 5 MILLIGRAM
     Route: 048
  10. FLUOROMETHOLONE [Concomitant]
     Active Substance: FLUOROMETHOLONE
     Dosage: 0.1 PERCENT, BID
     Route: 047
     Dates: start: 20220519
  11. FLONASE [Concomitant]
     Active Substance: FLUTICASONE PROPIONATE
     Dosage: 50 MICROGRAM
     Route: 045
  12. NEURONTIN [Concomitant]
     Active Substance: GABAPENTIN
     Dosage: 300 MILLIGRAM, QD
     Route: 048
     Dates: start: 20220328
  13. FLUZONE HIGH-DOSE NOS [Concomitant]
     Active Substance: INFLUENZA A VIRUS A/CALIFORNIA/7/2009 X-179A (H1N1) ANTIGEN (FORMALDEHYDE INACTIVATED)\INFLUENZA A V
     Dosage: 240 MICROGRAM
     Dates: start: 20211013, end: 20221013
  14. COZAAR [Concomitant]
     Active Substance: LOSARTAN POTASSIUM
     Dosage: 25 MILLIGRAM, QD
     Route: 048
     Dates: start: 20220104, end: 20221224
  15. TOPROL XL [Concomitant]
     Active Substance: METOPROLOL SUCCINATE
     Dosage: 100 MILLIGRAM, QD
     Route: 048
     Dates: start: 20220826, end: 20221213
  16. POTASSIUM CHLORIDE [Concomitant]
     Active Substance: POTASSIUM CHLORIDE
     Dosage: 20 MILLIEQUIVALENT, TID
     Route: 048
     Dates: start: 20220927
  17. OZEMPIC [Concomitant]
     Active Substance: SEMAGLUTIDE
     Dosage: 1 MILLIGRAM, QWK
     Route: 061
     Dates: start: 20220802
  18. SODIUM CHLORIDE [Concomitant]
     Active Substance: SODIUM CHLORIDE
     Dosage: 0.9 PERCENT
     Dates: start: 20211230
  19. CIALIS [Concomitant]
     Active Substance: TADALAFIL
     Indication: Erectile dysfunction
     Dosage: 20 MILLIGRAM, QD
     Route: 048
     Dates: start: 20220304, end: 20230103
  20. FLOMAX [Concomitant]
     Active Substance: TAMSULOSIN HYDROCHLORIDE
     Dosage: 0.4 MILLIGRAM, QD
     Route: 048
     Dates: start: 20210108
  21. Depo testermon [Concomitant]
     Dosage: 100 MILLIGRAM, QWK
     Route: 030
  22. VALTREX [Concomitant]
     Active Substance: VALACYCLOVIR HYDROCHLORIDE
     Dosage: 500 MILLIGRAM, QD
     Route: 048
     Dates: start: 20220620, end: 20221214
  23. KLOR-CON [Concomitant]
     Active Substance: POTASSIUM CHLORIDE
     Dosage: 20 MILLIEQUIVALENT, TID
     Route: 048

REACTIONS (5)
  - Device difficult to use [Unknown]
  - Accidental exposure to product [Unknown]
  - Viral infection [Recovering/Resolving]
  - Presyncope [Recovering/Resolving]
  - Pulse abnormal [Unknown]

NARRATIVE: CASE EVENT DATE: 20230202
